FAERS Safety Report 7236693-3 (Version None)
Quarter: 2011Q1

REPORT INFORMATION
  Report Type: 
  Country: None (occurrence: None)
  Receive Date: 20110120
  Receipt Date: 20110118
  Transmission Date: 20110831
  Serious: Yes (Hospitalization)
  Sender: FDA-Public Use
  Company Number: US-PFIZER INC-2011012320

PATIENT
  Sex: Male
  Weight: 63.5 kg

DRUGS (4)
  1. PROCARDIA XL [Suspect]
     Indication: BLOOD PRESSURE ABNORMAL
     Dosage: 90 MG, DAILY
     Route: 048
     Dates: start: 20100101
  2. METOPROLOL [Concomitant]
     Dosage: 100 MG, UNK
  3. COZAAR [Concomitant]
     Dosage: 100 MG, UNK
  4. PRAVASTATIN [Concomitant]
     Dosage: 40 MG, UNK

REACTIONS (3)
  - FATIGUE [None]
  - DEHYDRATION [None]
  - BALANCE DISORDER [None]
